FAERS Safety Report 5213140-4 (Version None)
Quarter: 2007Q1

REPORT INFORMATION
  Report Type: 
  Country: None (occurrence: None)
  Receive Date: 20070119
  Receipt Date: 20070108
  Transmission Date: 20070707
  Serious: Yes (Other)
  Sender: FDA-Public Use
  Company Number: PHBS2007BR00863

PATIENT
  Age: 6 Year
  Sex: Female

DRUGS (1)
  1. TRILEPTAL [Suspect]

REACTIONS (3)
  - CONVULSION [None]
  - DRUG INEFFECTIVE [None]
  - SOMNOLENCE [None]
